FAERS Safety Report 4501150-1 (Version None)
Quarter: 2004Q4

REPORT INFORMATION
  Report Type: 
  Country: None (occurrence: None)
  Receive Date: 20041115
  Receipt Date: 20041104
  Transmission Date: 20050328
  Serious: Yes (Hospitalization)
  Sender: FDA-Public Use
  Company Number: PHBS2004JP14807

PATIENT
  Age: 8 Year
  Sex: Male

DRUGS (5)
  1. SIMULECT [Suspect]
     Indication: RENAL TRANSPLANT
  2. PREDNISOLONE [Suspect]
     Indication: RENAL TRANSPLANT
     Route: 065
  3. MIZORIBINE [Suspect]
     Indication: RENAL TRANSPLANT
     Route: 065
  4. TACROLIMUS [Concomitant]
     Indication: RENAL TRANSPLANT
  5. MYCOPHENOLIC ACID [Concomitant]

REACTIONS (11)
  - ANASTOMOTIC COMPLICATION [None]
  - BLOOD URIC ACID INCREASED [None]
  - CALCULUS BLADDER [None]
  - CALCULUS URETHRAL [None]
  - COMPLICATIONS OF TRANSPLANTED KIDNEY [None]
  - CRYSTAL URINE PRESENT [None]
  - HAEMATURIA [None]
  - HYDRONEPHROSIS [None]
  - LITHOTRIPSY [None]
  - PH URINE DECREASED [None]
  - URETERIC DILATATION [None]
